FAERS Safety Report 23343118 (Version 1)
Quarter: 2023Q4

REPORT INFORMATION
  Report Type: Spontaneous
  Country: CH (occurrence: CH)
  Receive Date: 20231227
  Receipt Date: 20231227
  Transmission Date: 20240109
  Serious: Yes (Other)
  Sender: FDA-Public Use
  Company Number: CH-BIOVITRUM-2023-CH-021059

PATIENT
  Sex: Female

DRUGS (1)
  1. KINERET [Suspect]
     Active Substance: ANAKINRA
     Indication: Chondrocalcinosis
     Dosage: ONCE DAILY
     Route: 058

REACTIONS (2)
  - Off label use [Recovered/Resolved]
  - Plasma cell myeloma [Unknown]
